FAERS Safety Report 26080696 (Version 1)
Quarter: 2025Q4

REPORT INFORMATION
  Report Type: Spontaneous
  Country: CA (occurrence: CA)
  Receive Date: 20251124
  Receipt Date: 20251124
  Transmission Date: 20260118
  Serious: Yes (Death)
  Sender: ROCHE
  Company Number: CA-ROCHE-10000440667

PATIENT
  Age: 55 Year
  Sex: Male

DRUGS (1)
  1. RITUXAN [Suspect]
     Active Substance: RITUXIMAB
     Indication: Product used for unknown indication
     Dosage: 2.3 MILLIGRAM/MILLILITER
     Route: 042

REACTIONS (8)
  - Abdominal pain [Fatal]
  - Altered state of consciousness [Fatal]
  - Dizziness [Fatal]
  - Hyperhidrosis [Fatal]
  - Hypotension [Fatal]
  - Nausea [Fatal]
  - Pulse absent [Fatal]
  - Unresponsive to stimuli [Fatal]
